FAERS Safety Report 20159236 (Version 1)
Quarter: 2021Q4

REPORT INFORMATION
  Report Type: Spontaneous
  Country: DE (occurrence: DE)
  Receive Date: 20211208
  Receipt Date: 20211208
  Transmission Date: 20220303
  Serious: Yes (Other)
  Sender: FDA-Public Use
  Company Number: DE-NORGINE LIMITED-NOR202103849

PATIENT
  Sex: Male

DRUGS (1)
  1. FERRIC MALTOL [Suspect]
     Active Substance: FERRIC MALTOL
     Indication: Product used for unknown indication
     Dosage: 1 DF, QD (IN MORNING)
     Route: 048

REACTIONS (2)
  - Haematochezia [Recovered/Resolved]
  - Inappropriate schedule of product administration [Unknown]
